FAERS Safety Report 11886397 (Version 1)
Quarter: 2016Q1

REPORT INFORMATION
  Report Type: Spontaneous
  Country: VE (occurrence: VE)
  Receive Date: 20160104
  Receipt Date: 20160104
  Transmission Date: 20160526
  Serious: Yes (Other)
  Sender: FDA-Public Use
  Company Number: VE-PFIZER INC-2015465548

PATIENT
  Age: 42 Year
  Sex: Female

DRUGS (1)
  1. CICLOKAPRON [Suspect]
     Active Substance: TRANEXAMIC ACID
     Indication: HAEMORRHAGE

REACTIONS (2)
  - Uterine haemorrhage [Unknown]
  - Condition aggravated [Unknown]
